FAERS Safety Report 8480922-5 (Version None)
Quarter: 2012Q2

REPORT INFORMATION
  Report Type: 
  Country: None (occurrence: None)
  Receive Date: 20120625
  Receipt Date: 20120611
  Transmission Date: 20120825
  Serious: Yes (Death)
  Sender: FDA-Public Use
  Company Number: 2012P1040861

PATIENT
  Age: 69 Year
  Sex: Male
  Weight: 68.9467 kg

DRUGS (1)
  1. FLECAINIDE ACETATE [Suspect]
     Indication: SUPRAVENTRICULAR TACHYCARDIA
     Dosage: 100 MG;QD

REACTIONS (1)
  - ARTERIOSCLEROSIS [None]
